FAERS Safety Report 7766994-1 (Version None)
Quarter: 2011Q3

REPORT INFORMATION
  Report Type: 
  Country: None (occurrence: None)
  Receive Date: 20110901
  Receipt Date: 20110719
  Transmission Date: 20111222
  Serious: Yes (Hospitalization)
  Sender: FDA-Public Use
  Company Number: 290550USA

PATIENT
  Age: 11 Year
  Sex: Male

DRUGS (2)
  1. ALBUTEROL [Concomitant]
  2. BUDESONIDE [Suspect]
     Indication: ASTHMA
     Dosage: 0.5MG/2ML (2 IN 1 D), RESPIRATORY (INHALATION)
     Route: 055

REACTIONS (1)
  - ASTHMA [None]
